FAERS Safety Report 13737852 (Version 1)
Quarter: 2017Q3

REPORT INFORMATION
  Report Type: Spontaneous
  Country: US (occurrence: US)
  Receive Date: 20170710
  Receipt Date: 20170710
  Transmission Date: 20171127
  Serious: No
  Sender: FDA-Public Use
  Company Number: US-SAOL THERAPEUTICS-2016SAO00641

PATIENT
  Sex: Female

DRUGS (8)
  1. BACLOFEN. [Suspect]
     Active Substance: BACLOFEN
     Indication: PAIN
     Dosage: 168.97 ?G, \DAY
     Route: 037
     Dates: start: 20160928
  2. MORPHINE [Suspect]
     Active Substance: MORPHINE
     Dosage: 2.4005 MG, \DAY
     Route: 037
     Dates: start: 20160831, end: 20160928
  3. BACLOFEN. [Suspect]
     Active Substance: BACLOFEN
     Indication: PAIN
     Dosage: 211.16 ?G, \DAY
     Route: 037
  4. BACLOFEN. [Suspect]
     Active Substance: BACLOFEN
     Indication: PAIN
     Dosage: 137.17 ?G, \DAY
     Route: 037
     Dates: start: 20160831, end: 20160928
  5. MORPHINE [Suspect]
     Active Substance: MORPHINE
     Dosage: 2.0963 ?G, \DAY
     Route: 037
     Dates: start: 20160801, end: 20160831
  6. MORPHINE [Suspect]
     Active Substance: MORPHINE
     Dosage: 2.7035 MG, \DAY
     Route: 037
     Dates: start: 20160928
  7. BACLOFEN. [Suspect]
     Active Substance: BACLOFEN
     Dosage: 122.28 ?G, \DAY
     Dates: start: 20160801, end: 20160831
  8. MORPHINE [Suspect]
     Active Substance: MORPHINE
     Indication: PAIN
     Dosage: 3.619 MG, \DAY
     Route: 037

REACTIONS (7)
  - Anxiety [Unknown]
  - Musculoskeletal stiffness [Unknown]
  - Pain [Unknown]
  - Muscle tightness [Unknown]
  - Drug ineffective for unapproved indication [Unknown]
  - Arthritis [Unknown]
  - Pain in extremity [Unknown]

NARRATIVE: CASE EVENT DATE: 20160829
